FAERS Safety Report 8074924-0 (Version None)
Quarter: 2012Q1

REPORT INFORMATION
  Report Type: 
  Country: None (occurrence: None)
  Receive Date: 20120126
  Receipt Date: 20120123
  Transmission Date: 20120608
  Serious: Yes (Hospitalization, Other)
  Sender: FDA-Public Use
  Company Number: CA-ABBOTT-12P-028-0896038-00

PATIENT
  Sex: Male
  Weight: 69.462 kg

DRUGS (3)
  1. APO-PROCHLORAZINE [Concomitant]
     Indication: PAIN
     Dosage: 10 MG PRN Q 6 HOURS PO OR SUPPOSITORY
  2. LUPRON DEPOT [Suspect]
     Indication: PROSTATE CANCER
     Dosage: 4 MONTHS DEPOT
     Route: 030
     Dates: start: 20081021
  3. PMS-HYDROMORPHONE [Concomitant]
     Indication: PAIN
     Dosage: 1 MG: 1-2 TABS Q 4 HRS PRN
     Route: 048

REACTIONS (2)
  - SKIN CANCER [None]
  - FACE OEDEMA [None]
